FAERS Safety Report 23159187 (Version 1)
Quarter: 2023Q4

REPORT INFORMATION
  Report Type: Spontaneous
  Country: US (occurrence: None)
  Receive Date: 20231107
  Receipt Date: 20231107
  Transmission Date: 20240109
  Serious: Yes (Hospitalization)
  Sender: FDA-Public Use
  Company Number: None

PATIENT
  Age: 61 Year
  Sex: Male
  Weight: 53.1 kg

DRUGS (13)
  1. DAPTOMYCIN [Suspect]
     Active Substance: DAPTOMYCIN
     Indication: Osteomyelitis
     Dosage: 315 MG DAILY INTRAVENOUS
     Route: 042
     Dates: start: 20231013, end: 20231026
  2. AMLODIPINE [Concomitant]
     Active Substance: AMLODIPINE BESYLATE
  3. ATORVASTATIN [Concomitant]
     Active Substance: ATORVASTATIN
  4. SUCRALFATE [Concomitant]
     Active Substance: SUCRALFATE
  5. FERROUS SULFATE [Concomitant]
     Active Substance: FERROUS SULFATE
  6. FOLIC ACID [Concomitant]
     Active Substance: FOLIC ACID
  7. VITAMINS [Concomitant]
     Active Substance: VITAMINS
  8. ONDANSETRON [Concomitant]
     Active Substance: ONDANSETRON
  9. PANTOPRAZOLE [Concomitant]
     Active Substance: PANTOPRAZOLE
  10. sennosides-docusate [Concomitant]
  11. THIAMINE [Concomitant]
     Active Substance: THIAMINE
  12. VITAMIN B12 [Concomitant]
     Active Substance: CYANOCOBALAMIN
  13. bacitracin-polymixin B [Concomitant]

REACTIONS (2)
  - Pancytopenia [None]
  - Therapy cessation [None]

NARRATIVE: CASE EVENT DATE: 20231026
